FAERS Safety Report 9549763 (Version 1)
Quarter: 2013Q3

REPORT INFORMATION
  Report Type: Spontaneous
  Country: US (occurrence: US)
  Receive Date: 20130924
  Receipt Date: 20130924
  Transmission Date: 20140515
  Serious: No
  Sender: FDA-Public Use
  Company Number: US-ALLERGAN-1309490US

PATIENT
  Sex: Male

DRUGS (3)
  1. LUMIGAN 0.01% [Suspect]
     Indication: GLAUCOMA
     Dosage: 2 GTT, UNK
     Route: 047
     Dates: start: 20130315
  2. LUMIGAN 0.01% [Suspect]
     Indication: INTRAOCULAR PRESSURE INCREASED
  3. BEE POLLEN [Concomitant]
     Indication: SEASONAL ALLERGY
     Dosage: UNK

REACTIONS (2)
  - Muscular weakness [Unknown]
  - Exercise tolerance decreased [Unknown]
